FAERS Safety Report 4688515-2 (Version None)
Quarter: 2005Q2

REPORT INFORMATION
  Report Type: 
  Country: None (occurrence: None)
  Receive Date: 20050609
  Receipt Date: 20050601
  Transmission Date: 20051028
  Serious: Yes (Hospitalization)
  Sender: FDA-Public Use
  Company Number: 2005070862

PATIENT
  Age: 69 Year
  Sex: Female

DRUGS (7)
  1. LIPITOR [Suspect]
     Indication: HYPERCHOLESTEROLAEMIA
     Dosage: 10 MG (10 MG, 1 IN 1 D), ORAL
     Route: 048
     Dates: start: 20000501
  2. AVANDIA [Concomitant]
  3. METOPROLOL TARTRATE [Concomitant]
  4. VASCASE (CILAZAPRIL) [Concomitant]
  5. ACETYLSALICYLIC ACID SRT [Concomitant]
  6. PURAN T4 (LEVOTHYROXINE SODIUM) [Concomitant]
  7. LEXOTAN (BROMAZEPAM) [Concomitant]

REACTIONS (3)
  - ARTERIAL OCCLUSIVE DISEASE [None]
  - BACK PAIN [None]
  - INSOMNIA [None]
